FAERS Safety Report 5071974-3 (Version None)
Quarter: 2006Q3

REPORT INFORMATION
  Report Type: 
  Country: None (occurrence: None)
  Receive Date: 20060714
  Receipt Date: 20060529
  Transmission Date: 20061208
  Serious: No
  Sender: FDA-Public Use
  Company Number: 2006SP002253

PATIENT
  Age: 59 Year
  Sex: Female
  Weight: 58.9676 kg

DRUGS (7)
  1. LUNESTA [Suspect]
     Indication: INITIAL INSOMNIA
     Dosage: 2 MG;ORAL
     Route: 048
     Dates: start: 20060501, end: 20060501
  2. DIPHENHYDRAMINE [Concomitant]
  3. HYDROCHLORIDE [Concomitant]
  4. XANAX [Concomitant]
  5. CELEXA [Concomitant]
  6. VERAPAMIL [Concomitant]
  7. TYLENOL [Concomitant]

REACTIONS (2)
  - ABNORMAL DREAMS [None]
  - INSOMNIA [None]
